FAERS Safety Report 14704706 (Version 1)
Quarter: 2018Q2

REPORT INFORMATION
  Report Type: Spontaneous
  Country: CH (occurrence: CH)
  Receive Date: 20180402
  Receipt Date: 20180402
  Transmission Date: 20180711
  Serious: Yes (Death)
  Sender: FDA-Public Use
  Company Number: CH-TEVA-2018-CH-874905

PATIENT
  Age: 69 Year
  Sex: Female

DRUGS (12)
  1. SINTROM [Concomitant]
     Active Substance: ACENOCOUMAROL
     Route: 048
  2. MODASOMIL -100 TABLETTEN [Suspect]
     Active Substance: MODAFINIL
     Route: 048
     Dates: start: 20171102, end: 20180221
  3. PK-MERZ [Suspect]
     Active Substance: AMANTADINE
     Route: 048
     Dates: start: 20170922, end: 20180221
  4. CORDARONE COMPRIMES [Concomitant]
     Route: 048
  5. NEXIUM MUPS [Concomitant]
     Active Substance: ESOMEPRAZOLE MAGNESIUM
     Route: 048
  6. LANTUS [Concomitant]
     Active Substance: INSULIN GLARGINE
     Route: 058
  7. BUSCOPAN INJEKTIONSLOESUNG [Concomitant]
     Route: 058
  8. CATAPRESAN [Concomitant]
     Active Substance: CLONIDINE
     Route: 048
  9. SCOPODERM TTS TRANSDERM THER /OLD FORM/ [Suspect]
     Active Substance: SCOPOLAMINE
     Route: 062
  10. ORFIRIL DESITIN [Concomitant]
     Active Substance: VALPROATE SODIUM
     Route: 048
  11. METO ZEROK 100 [Concomitant]
     Active Substance: METOPROLOL SUCCINATE
     Route: 048
  12. TORASEMID SANDOZ ECO [Concomitant]
     Active Substance: TORSEMIDE
     Route: 048

REACTIONS (21)
  - Hyporesponsive to stimuli [None]
  - Gastrointestinal haemorrhage [None]
  - Subdural haemorrhage [None]
  - Subarachnoid haemorrhage [None]
  - Disseminated intravascular coagulation [None]
  - Alanine aminotransferase increased [None]
  - Hyperthermia [Fatal]
  - Multiple organ dysfunction syndrome [Fatal]
  - Blood prolactin increased [None]
  - Gamma-glutamyltransferase increased [None]
  - Cerebral haemorrhage [None]
  - Intraventricular haemorrhage [None]
  - Post procedural fistula [None]
  - Hepatocellular injury [None]
  - Renal failure [None]
  - Rhabdomyolysis [None]
  - Neutrophil count increased [None]
  - Blood lactate dehydrogenase increased [None]
  - Cardiac disorder [None]
  - Leukocytosis [None]
  - Aspartate aminotransferase increased [None]

NARRATIVE: CASE EVENT DATE: 201802
